FAERS Safety Report 7731634-4 (Version None)
Quarter: 2011Q3

REPORT INFORMATION
  Report Type: 
  Country: None (occurrence: None)
  Receive Date: 20110906
  Receipt Date: 20110621
  Transmission Date: 20111222
  Serious: No
  Sender: FDA-Public Use
  Company Number: US-AMGEN-USASP2011031802

PATIENT
  Age: 88 Year
  Sex: Female

DRUGS (10)
  1. VITAMIN C                          /00008001/ [Concomitant]
  2. VITAMIN B COMPLEX                  /00003501/ [Concomitant]
  3. WARFARIN SODIUM [Concomitant]
  4. SIMVASTATIN [Concomitant]
  5. MULTIVITAMIN                       /00097801/ [Concomitant]
  6. SPIRONOLACTONE [Concomitant]
  7. COQ10 [Concomitant]
  8. PROLIA [Suspect]
     Indication: OSTEOPOROSIS POSTMENOPAUSAL
     Dosage: 60 MG, UNK
     Dates: start: 20110609
  9. METOPROLOL [Concomitant]
  10. CALCIUM W/VITAMIN D                /00188401/ [Concomitant]

REACTIONS (1)
  - NAUSEA [None]
